FAERS Safety Report 13412530 (Version 3)
Quarter: 2024Q1

REPORT INFORMATION
  Report Type: Spontaneous
  Country: US (occurrence: US)
  Receive Date: 20170406
  Receipt Date: 20240105
  Transmission Date: 20240410
  Serious: No
  Sender: FDA-Public Use
  Company Number: US-JNJFOC-20170307950

PATIENT
  Age: 13 Year
  Sex: Male

DRUGS (6)
  1. RISPERDAL [Suspect]
     Active Substance: RISPERIDONE
     Indication: Tourette^s disorder
     Dosage: DOSAGE VARYING FROM 1 MG TO 4 MG
     Route: 048
     Dates: start: 20021213, end: 20080627
  2. RISPERDAL [Suspect]
     Active Substance: RISPERIDONE
     Indication: Behaviour disorder
     Dosage: DOSAGE VARYING FROM 1 MG TO 4 MG
     Route: 048
     Dates: start: 20090220, end: 20120817
  3. RISPERDAL [Suspect]
     Active Substance: RISPERIDONE
     Dosage: DOSAGE VARYING FROM 1 MG TO 4 MG
     Route: 048
     Dates: start: 20150704, end: 20160412
  4. RISPERDAL [Suspect]
     Active Substance: RISPERIDONE
     Route: 048
  5. RISPERIDONE [Suspect]
     Active Substance: RISPERIDONE
     Indication: Tourette^s disorder
     Dosage: DOSAGE VARYING FROM 2 MG TO 4 MG
     Route: 048
     Dates: start: 20080725, end: 20080925
  6. RISPERIDONE [Suspect]
     Active Substance: RISPERIDONE
     Dosage: DOSAGE VARYING FROM 2 MG TO 4 MG
     Route: 048
     Dates: start: 20130201, end: 20160225

REACTIONS (6)
  - Gynaecomastia [Unknown]
  - Emotional disorder [Unknown]
  - Off label use [Unknown]
  - Product use in unapproved indication [Unknown]
  - Treatment noncompliance [Unknown]
  - Off label use [Unknown]

NARRATIVE: CASE EVENT DATE: 20080725
